FAERS Safety Report 5847438-3 (Version None)
Quarter: 2008Q3

REPORT INFORMATION
  Report Type: 
  Country: None (occurrence: None)
  Receive Date: 20080813
  Receipt Date: 20080801
  Transmission Date: 20090109
  Serious: Yes (Hospitalization)
  Sender: FDA-Public Use
  Company Number: 100#03#2008-03922

PATIENT
  Age: 75 Year
  Sex: Female

DRUGS (12)
  1. ALENDRONIC ACID (ALENDRONIC ACID) [Suspect]
     Indication: OSTEOPOROSIS PROPHYLAXIS
     Dosage: 70 MG ONCE WEEKLY ORAL
     Route: 048
     Dates: start: 20080613, end: 20080709
  2. ACETYLSALICYLIC ACID SRT [Concomitant]
  3. CALCICHEW D3 (CHOLECALCIFEROL, CALCIUM CARBONATE) [Concomitant]
  4. CARBOCYSTEINE (CARBOCYSTEINE) [Concomitant]
  5. DILTIAZEM [Concomitant]
  6. FUROSEMIDE (FUROSEMIDE) [Concomitant]
  7. IPRATROPIUM BROMIDE [Concomitant]
  8. PHYLLOCONTIN [Concomitant]
  9. PROCHLORPERAZINE MALEATE [Concomitant]
  10. SALBUTAMOL (SALBUTAMOL) [Concomitant]
  11. SERETIDE (FLUTICASONE, SALMETEROL) [Concomitant]
  12. SIMVASTATIN [Concomitant]

REACTIONS (4)
  - ACUTE CORONARY SYNDROME [None]
  - HYPOCALCAEMIA [None]
  - NAUSEA [None]
  - VOMITING [None]
